FAERS Safety Report 13459241 (Version 1)
Quarter: 2017Q2

REPORT INFORMATION
  Report Type: Report from Study
  Country: CN (occurrence: CN)
  Receive Date: 20170419
  Receipt Date: 20170419
  Transmission Date: 20170830
  Serious: Yes (Death, Hospitalization)
  Sender: FDA-Public Use
  Company Number: CN-ROCHE-1052298

PATIENT
  Age: 58 Year
  Sex: Male
  Weight: 50 kg

DRUGS (37)
  1. DIHYDROCODEINE + PARACETAMOL [Concomitant]
     Route: 065
     Dates: start: 20111214, end: 20120118
  2. AMLODIPINE BESYLATE. [Concomitant]
     Active Substance: AMLODIPINE BESYLATE
     Route: 065
     Dates: start: 20120219, end: 20120313
  3. MYRTOL [Concomitant]
     Active Substance: HERBALS
     Route: 065
     Dates: start: 20120219, end: 20120312
  4. CIMETIDINE [Concomitant]
     Active Substance: CIMETIDINE
     Route: 065
     Dates: start: 20120220, end: 20120220
  5. BISACODYL. [Concomitant]
     Active Substance: BISACODYL
     Indication: CONSTIPATION
     Route: 065
     Dates: start: 20111212, end: 20120118
  6. HYDROTALCITE [Concomitant]
     Active Substance: HYDROTALCITE
     Route: 065
     Dates: start: 20120219, end: 20120229
  7. DEXAMETHASONE SODIUM PHOSPHATE. [Concomitant]
     Active Substance: DEXAMETHASONE SODIUM PHOSPHATE
     Route: 065
     Dates: start: 20120220, end: 20120220
  8. HERBAL NOS [Concomitant]
     Active Substance: HERBALS
     Route: 065
     Dates: start: 20120129, end: 20120129
  9. TROPISETRON HYDROCHLORIDE [Concomitant]
     Active Substance: TROPISETRON HYDROCHLORIDE
     Route: 065
     Dates: start: 20120220, end: 20120220
  10. TRAMADOL HYDROCHLORIDE. [Concomitant]
     Active Substance: TRAMADOL HYDROCHLORIDE
     Route: 065
     Dates: start: 20120104, end: 20120120
  11. AMLODIPINE BESYLATE. [Concomitant]
     Active Substance: AMLODIPINE BESYLATE
     Indication: HYPERTENSION
     Route: 065
     Dates: start: 20111201, end: 20120117
  12. ALPRAZOLAM. [Concomitant]
     Active Substance: ALPRAZOLAM
     Indication: INSOMNIA
     Route: 065
     Dates: start: 20111214, end: 20120117
  13. AMLODIPINE BESYLATE. [Concomitant]
     Active Substance: AMLODIPINE BESYLATE
     Indication: HYPERTENSION
     Route: 065
     Dates: start: 20120219, end: 20120313
  14. DEXAMETHASONE SODIUM PHOSPHATE. [Concomitant]
     Active Substance: DEXAMETHASONE SODIUM PHOSPHATE
     Route: 065
     Dates: start: 20120129, end: 20120129
  15. CAPTOPRIL. [Concomitant]
     Active Substance: CAPTOPRIL
     Indication: HYPERTENSION
     Route: 065
     Dates: start: 20111214, end: 20120120
  16. THYMOPETIDUM [Concomitant]
     Route: 065
     Dates: start: 20120220, end: 20120220
  17. CARBOPLATIN. [Suspect]
     Active Substance: CARBOPLATIN
     Indication: NON-SMALL CELL LUNG CANCER
     Dosage: MOST RECENT DOSE: 20/FEB/2012
     Route: 042
     Dates: start: 20120105
  18. HYDROTALCITE [Concomitant]
     Active Substance: HYDROTALCITE
     Route: 065
     Dates: start: 20120219, end: 20120319
  19. RIBOFLAVIN SODIUM PHOSPHATE [Concomitant]
     Route: 065
     Dates: start: 20120220, end: 20120220
  20. TROPISETRON HYDROCHLORIDE [Concomitant]
     Active Substance: TROPISETRON HYDROCHLORIDE
     Route: 065
     Dates: start: 20120129, end: 20120129
  21. DEPROTEINISED CALF BLOOD INJECTION [Concomitant]
     Route: 065
     Dates: start: 20120220, end: 20120220
  22. METFORMIN HYDROCHLORIDE. [Concomitant]
     Active Substance: METFORMIN HYDROCHLORIDE
     Indication: DIABETES MELLITUS
     Route: 065
     Dates: start: 20111210, end: 20120120
  23. BISACODYL. [Concomitant]
     Active Substance: BISACODYL
     Route: 065
     Dates: start: 20120131, end: 20120207
  24. BISACODYL. [Concomitant]
     Active Substance: BISACODYL
     Route: 065
     Dates: start: 20120221, end: 20120229
  25. PACLITAXEL. [Suspect]
     Active Substance: PACLITAXEL
     Indication: NON-SMALL CELL LUNG CANCER
     Dosage: MOST RECENT DOSE: 20/FEB/2012
     Route: 042
     Dates: start: 20120105
  26. AMLODIPINE BESYLATE. [Concomitant]
     Active Substance: AMLODIPINE BESYLATE
     Route: 065
     Dates: start: 20120126, end: 20120220
  27. NATEGLINIDE. [Concomitant]
     Active Substance: NATEGLINIDE
     Indication: DIABETES MELLITUS
     Route: 065
     Dates: start: 20111203, end: 20120117
  28. NATEGLINIDE. [Concomitant]
     Active Substance: NATEGLINIDE
     Route: 065
     Dates: start: 20120126, end: 20120220
  29. NATEGLINIDE. [Concomitant]
     Active Substance: NATEGLINIDE
     Route: 065
     Dates: start: 20120218, end: 20120301
  30. METFORMIN HYDROCHLORIDE. [Concomitant]
     Active Substance: METFORMIN HYDROCHLORIDE
     Route: 065
     Dates: start: 20120126, end: 20120201
  31. HYDROTALCITE [Concomitant]
     Active Substance: HYDROTALCITE
     Route: 065
     Dates: start: 20120131, end: 20120207
  32. RIBOFLAVIN SODIUM PHOSPHATE [Concomitant]
     Route: 065
     Dates: start: 20120129, end: 20120129
  33. TRAMADOL HYDROCHLORIDE. [Concomitant]
     Active Substance: TRAMADOL HYDROCHLORIDE
     Route: 065
     Dates: start: 20120125, end: 20120207
  34. HYDROTALCITE [Concomitant]
     Active Substance: HYDROTALCITE
     Indication: DYSPEPSIA
     Route: 065
     Dates: start: 20120110, end: 20120117
  35. HERBAL NOS [Concomitant]
     Active Substance: HERBALS
     Route: 065
     Dates: start: 20120220, end: 20120220
  36. NIAODUQING KELI [Concomitant]
     Route: 065
     Dates: start: 20120219, end: 20120301
  37. BEVACIZUMAB [Suspect]
     Active Substance: BEVACIZUMAB
     Indication: NON-SMALL CELL LUNG CANCER
     Dosage: LAST DOSE PRIOR TO SAE: 20/FEB/2012
     Route: 042
     Dates: start: 20120105

REACTIONS (2)
  - Sinus tachycardia [Not Recovered/Not Resolved]
  - Multiple organ dysfunction syndrome [Fatal]

NARRATIVE: CASE EVENT DATE: 20120313
